FAERS Safety Report 9648888 (Version 1)
Quarter: 2013Q4

REPORT INFORMATION
  Report Type: Report from Study
  Country: JP (occurrence: JP)
  Receive Date: 20131028
  Receipt Date: 20131028
  Transmission Date: 20140711
  Serious: Yes (Hospitalization)
  Sender: FDA-Public Use
  Company Number: JP-PFIZER INC-2013302339

PATIENT
  Age: 76 Year
  Sex: Male

DRUGS (2)
  1. CRIZOTINIB [Suspect]
     Indication: LUNG NEOPLASM MALIGNANT
     Dosage: 500 MG, DAILY (500 MG/DAY)
     Route: 048
     Dates: start: 20130910, end: 20130917
  2. CRIZOTINIB [Suspect]
     Dosage: 250 MG, 1X/DAY
     Route: 048
     Dates: start: 20131004

REACTIONS (1)
  - Blood creatinine increased [Recovering/Resolving]
